FAERS Safety Report 24271313 (Version 1)
Quarter: 2024Q3

REPORT INFORMATION
  Report Type: Spontaneous
  Country: US (occurrence: None)
  Receive Date: 20240901
  Receipt Date: 20240901
  Transmission Date: 20241017
  Serious: No
  Sender: ASTRAZENECA
  Company Number: 2024A189877

PATIENT
  Age: 76 Year
  Sex: Male
  Weight: 68.9 kg

DRUGS (2)
  1. CALQUENCE [Suspect]
     Active Substance: ACALABRUTINIB
     Indication: Product used for unknown indication
     Route: 048
  2. BRUKINSA [Suspect]
     Active Substance: ZANUBRUTINIB
     Indication: Chronic lymphocytic leukaemia
     Route: 048
     Dates: start: 20240717

REACTIONS (4)
  - Fatigue [Unknown]
  - Dry skin [Unknown]
  - Product dose omission issue [Unknown]
  - Underdose [Unknown]
